FAERS Safety Report 5982909-0 (Version None)
Quarter: 2008Q4

REPORT INFORMATION
  Report Type: 
  Country: None (occurrence: None)
  Receive Date: 20081125
  Receipt Date: 20070927
  Transmission Date: 20090506
  Serious: Yes (Other)
  Sender: FDA-Public Use
  Company Number: 2007MP000523

PATIENT

DRUGS (4)
  1. GLIADEL [Suspect]
     Indication: ANAPLASTIC ASTROCYTOMA
     Dosage: X1;ICER
  2. GLIADEL [Suspect]
     Indication: GLIOBLASTOMA MULTIFORME
     Dosage: X1;ICER
  3. GLIADEL [Suspect]
     Indication: GLIOSARCOMA
     Dosage: X1;ICER
  4. GLIADEL [Suspect]
     Indication: OLIGODENDROGLIOMA
     Dosage: X1;ICER

REACTIONS (3)
  - BRAIN OEDEMA [None]
  - CONVULSION [None]
  - WOUND INFECTION [None]
